FAERS Safety Report 7744795-8 (Version None)
Quarter: 2011Q3

REPORT INFORMATION
  Report Type: 
  Country: None (occurrence: None)
  Receive Date: 20110912
  Receipt Date: 20110912
  Transmission Date: 20111222
  Serious: Yes (Hospitalization)
  Sender: FDA-Public Use
  Company Number: None

PATIENT
  Age: 76 Year
  Sex: Male
  Weight: 96.615 kg

DRUGS (1)
  1. ULORIC [Suspect]
     Indication: GOUT
     Dosage: 40MG
     Route: 048
     Dates: start: 20110823, end: 20110905

REACTIONS (3)
  - BLOOD CREATININE INCREASED [None]
  - URTICARIA [None]
  - RENAL FAILURE CHRONIC [None]
